FAERS Safety Report 11932324 (Version 1)
Quarter: 2016Q1

REPORT INFORMATION
  Report Type: Spontaneous
  Country: US (occurrence: US)
  Receive Date: 20160120
  Receipt Date: 20160120
  Transmission Date: 20160526
  Serious: No
  Sender: FDA-Public Use
  Company Number: US-SA-2015SA102260

PATIENT
  Age: 8 Year

DRUGS (1)
  1. THYMOGLOBULIN [Suspect]
     Active Substance: LAPINE T-LYMPHOCYTE IMMUNE GLOBULIN
     Dosage: FORM: INFUSION?NUMBER OF INFUSIONS : 3
     Route: 065

REACTIONS (1)
  - Infusion related reaction [Unknown]
